FAERS Safety Report 8353494-3 (Version None)
Quarter: 2012Q2

REPORT INFORMATION
  Report Type: 
  Country: None (occurrence: None)
  Receive Date: 20120511
  Receipt Date: 20110415
  Transmission Date: 20120825
  Serious: No
  Sender: FDA-Public Use
  Company Number: US-GLAXOSMITHKLINE-A0924082A

PATIENT
  Age: 66 Year
  Sex: Female

DRUGS (2)
  1. NAVELBINE [Suspect]
     Route: 065
  2. TYKERB [Suspect]
     Dosage: 1250MG PER DAY
     Route: 048
     Dates: start: 20110321, end: 20110519

REACTIONS (7)
  - DIARRHOEA [None]
  - HYPOTENSION [None]
  - FATIGUE [None]
  - WHITE BLOOD CELL COUNT DECREASED [None]
  - HYPERSOMNIA [None]
  - DRUG ADMINISTRATION ERROR [None]
  - ASTHENIA [None]
